FAERS Safety Report 5267032-5 (Version None)
Quarter: 2007Q1

REPORT INFORMATION
  Report Type: 
  Country: None (occurrence: None)
  Receive Date: 20070313
  Receipt Date: 20070306
  Transmission Date: 20070707
  Serious: Yes (Congenital Anomaly)
  Sender: FDA-Public Use
  Company Number: E2090-00192-SPO-US

PATIENT

DRUGS (4)
  1. ZONEGRAN [Suspect]
     Indication: DRUG EXPOSURE DURING PREGNANCY
     Dosage: 300 MG, 1 IN 1 D, TRANSPLACENTAL
     Route: 064
  2. DEPAKOTE [Suspect]
     Indication: DRUG EXPOSURE DURING PREGNANCY
     Dosage: 1500 MG, TRANSPLACENTAL
     Route: 064
  3. PRENATAL VITAMINS (PRENATAL VITAMINS) [Concomitant]
  4. FOLIC ACID [Concomitant]

REACTIONS (3)
  - DRUG EXPOSURE DURING PREGNANCY [None]
  - HYDROCEPHALUS [None]
  - SPINA BIFIDA [None]
